FAERS Safety Report 4636995-0 (Version None)
Quarter: 2005Q2

REPORT INFORMATION
  Report Type: 
  Country: None (occurrence: None)
  Receive Date: 20050414
  Receipt Date: 20050329
  Transmission Date: 20051028
  Serious: Yes (Death)
  Sender: FDA-Public Use
  Company Number: 8009772

PATIENT
  Sex: Female

DRUGS (2)
  1. KEPPRA [Suspect]
     Indication: EPILEPSY
     Dosage: 750 MG 2/D
     Dates: end: 20010101
  2. LAMOTRIGINE [Suspect]
     Indication: EPILEPSY
     Dosage: 25 MG/D
     Dates: end: 20010101

REACTIONS (2)
  - STEVENS-JOHNSON SYNDROME [None]
  - TREATMENT NONCOMPLIANCE [None]
